FAERS Safety Report 20828827 (Version 1)
Quarter: 2022Q2

REPORT INFORMATION
  Report Type: Spontaneous
  Country: US (occurrence: US)
  Receive Date: 20220513
  Receipt Date: 20220513
  Transmission Date: 20220721
  Serious: No
  Sender: FDA-Public Use
  Company Number: US-PFIZER INC-202200249534

PATIENT
  Age: 85 Year
  Sex: Male

DRUGS (1)
  1. DOXYCYCLINE CALCIUM [Suspect]
     Active Substance: DOXYCYCLINE CALCIUM
     Indication: Cough
     Dosage: UNK
     Dates: start: 20211006

REACTIONS (1)
  - Drug ineffective [Unknown]
